FAERS Safety Report 9670665 (Version 1)
Quarter: 2013Q4

REPORT INFORMATION
  Report Type: Report from Study
  Country: FR (occurrence: FR)
  Receive Date: 20131106
  Receipt Date: 20131106
  Transmission Date: 20140711
  Serious: Yes (Hospitalization)
  Sender: FDA-Public Use
  Company Number: FR-BRISTOL-MYERS SQUIBB COMPANY-19711597

PATIENT
  Age: 42 Year
  Sex: Female

DRUGS (27)
  1. PACLITAXEL [Suspect]
     Indication: HER-2 POSITIVE BREAST CANCER
     Dosage: LAST DOSE PRIOR TO SAE: 03/OCT/2013. (123 MG,1 IN 1 WK)
     Route: 042
     Dates: start: 20130621, end: 20131003
  2. PERTUZUMAB [Suspect]
     Indication: HER-2 POSITIVE BREAST CANCER
     Dosage: LD DE FOR CYCLE 1 . (840 MG,L IN 1 TO)?MT DE. LT DOE PRIOR TO SAE: 03/OCT/2013. (420 MG,L/3WK)
     Route: 042
     Dates: start: 20130619
  3. TRASTUZUMAB [Suspect]
     Indication: HER-2 POSITIVE BREAST CANCER
     Dosage: INF SOLN?LAST DOSE PRIOR TO SAE: 03/OCT/2013. (409 MG,L IN 3 WK)
     Route: 042
     Dates: start: 20130620
  4. DEXAMETHASONE [Concomitant]
     Indication: PREMEDICATION
     Dates: start: 20130621
  5. DEXCHLORPHENIRAMINE [Concomitant]
     Indication: PREMEDICATION
     Dates: start: 20130621
  6. RANITIDINE [Concomitant]
     Indication: PREMEDICATION
     Dates: start: 20130621
  7. ONDANSETRON [Concomitant]
     Indication: PREMEDICATION
     Dates: start: 20130621
  8. XANAX [Concomitant]
     Dates: start: 201306, end: 20131010
  9. DIFFU-K [Concomitant]
     Dosage: 01AU13-17AU13?18AU13    (3600 MG)
     Dates: start: 20130801
  10. SOLU-MEDROL [Concomitant]
     Dosage: 17AU13-18AU13?19AU13-20AU13 (60 MG)?26AU13  (20 MG)
     Dates: start: 20130817
  11. ZOMETA [Concomitant]
     Indication: PROPHYLAXIS
     Dates: start: 201307
  12. DAFALGAN [Concomitant]
     Dates: start: 20130909
  13. PRIMPERAN [Concomitant]
     Indication: PROPHYLAXIS OF NAUSEA AND VOMITING
     Dates: start: 20130823
  14. AMOXICILLIN [Concomitant]
     Dates: start: 20130930
  15. CELESTENE [Concomitant]
     Dates: start: 20130930
  16. DOLIPRANE [Concomitant]
     Dates: start: 20130930
  17. TIORFAN [Concomitant]
     Dates: start: 20130920, end: 20131008
  18. TRIFLUCAN [Concomitant]
     Dates: start: 20131003, end: 20131008
  19. INEXIUM [Concomitant]
     Indication: PROPHYLAXIS
     Dosage: 17AUG13-20AUG13?09SEP13-ONG
     Dates: start: 20130817
  20. PARACETAMOL [Concomitant]
     Dosage: 17AUG13-20AUG13?09SEP13-ONG
     Dates: start: 20130817
  21. DERMALIBOUR [Concomitant]
     Dates: start: 20130813
  22. CHLORHEXIDINE GLUCONATE [Concomitant]
     Dates: start: 20130806
  23. ORELOX [Concomitant]
     Dates: start: 20130923, end: 20130927
  24. DERINOX [Concomitant]
     Dates: start: 20130923, end: 20130927
  25. SPIFEN [Concomitant]
     Dates: start: 20130923, end: 20130927
  26. TOPLEXIL [Concomitant]
     Dosage: 1DF=1SPOON
     Dates: start: 20130923, end: 20130930
  27. PANTOPRAZOLE [Concomitant]
     Dates: start: 20130816, end: 20131013

REACTIONS (1)
  - Clostridium difficile colitis [Recovered/Resolved]
